FAERS Safety Report 7277284-8 (Version None)
Quarter: 2011Q1

REPORT INFORMATION
  Report Type: 
  Country: None (occurrence: None)
  Receive Date: 20110202
  Receipt Date: 20110202
  Transmission Date: 20110831
  Serious: Yes (Hospitalization)
  Sender: FDA-Public Use
  Company Number: None

PATIENT
  Age: 24 Year
  Sex: Female
  Weight: 75.7507 kg

DRUGS (2)
  1. OXYTOCIN [Suspect]
     Indication: POSTPARTUM HAEMORRHAGE
     Dosage: 20 UNITS UD IV DRIP
     Route: 041
     Dates: start: 20101206, end: 20101207
  2. OXYTOCIN [Suspect]
     Indication: POSTPARTUM HAEMORRHAGE
     Dosage: 20 UNITS UD IV DRIP
     Route: 041
     Dates: start: 20101206, end: 20101207

REACTIONS (2)
  - NO THERAPEUTIC RESPONSE [None]
  - POSTPARTUM HAEMORRHAGE [None]
